FAERS Safety Report 14304925 (Version 1)
Quarter: 2017Q4

REPORT INFORMATION
  Report Type: Report from Study
  Country: JP (occurrence: JP)
  Receive Date: 20171219
  Receipt Date: 20171219
  Transmission Date: 20180321
  Serious: Yes (Other)
  Sender: FDA-Public Use
  Company Number: JP-OTSUKA-JP-2011-11254

PATIENT
  Sex: Female

DRUGS (13)
  1. DEPAKENE [Concomitant]
     Active Substance: VALPROIC ACID
     Dosage: 400 MG, QD
     Route: 048
     Dates: start: 20110726
  2. THYRADIN S [Concomitant]
     Active Substance: LEVOTHYROXINE SODIUM
     Indication: HYPOTHYROIDISM
     Dosage: 25 ?G, QD
     Route: 048
     Dates: start: 20110614
  3. ARIPIPRAZOLE. [Suspect]
     Active Substance: ARIPIPRAZOLE
     Indication: SCHIZOPHRENIA
     Dosage: 12 MG, QD
     Route: 048
     Dates: start: 20110527, end: 20110602
  4. ARIPIPRAZOLE. [Suspect]
     Active Substance: ARIPIPRAZOLE
     Dosage: 24 MG, QD
     Route: 048
     Dates: start: 20110620
  5. CO DIO COMBINATION [Concomitant]
     Active Substance: HYDROCHLOROTHIAZIDE\VALSARTAN
     Dosage: 1 DF, QD
     Route: 048
     Dates: start: 20110614
  6. OLANZAPINE. [Concomitant]
     Active Substance: OLANZAPINE
     Dosage: UNK
     Dates: start: 20110506, end: 20110602
  7. ABILIFY [Suspect]
     Active Substance: ARIPIPRAZOLE
     Indication: SCHIZOPHRENIA
     Dosage: INT ON 2JUN11. RESUMED ON 9JUN11,9-19JUN11 12MG/D, DOSE INCREASED TO 24MG/D ON 20JUN11.
     Route: 048
     Dates: start: 20110527
  8. ZYPREXA [Concomitant]
     Active Substance: OLANZAPINE
     Indication: SCHIZOPHRENIA
     Dosage: 10 MG, QD
     Route: 048
     Dates: start: 20110506, end: 20110518
  9. ARIPIPRAZOLE. [Suspect]
     Active Substance: ARIPIPRAZOLE
     Dosage: 12 MG, QD
     Route: 048
     Dates: start: 20110609, end: 20110619
  10. DEPAKENE [Concomitant]
     Active Substance: VALPROIC ACID
     Indication: SCHIZOPHRENIA
     Dosage: 400 MG, QD
     Route: 048
     Dates: start: 20110519, end: 20110602
  11. FLUDECASIN [Concomitant]
     Active Substance: FLUPHENAZINE DECANOATE
     Indication: SCHIZOPHRENIA
     Dosage: 25 MG, QD
     Route: 042
     Dates: start: 20110712, end: 20110712
  12. ZYPREXA [Concomitant]
     Active Substance: OLANZAPINE
     Dosage: 20 MG, QD
     Route: 048
     Dates: start: 20110519, end: 20110602
  13. FLUPHENAZINE DECANOATE. [Concomitant]
     Active Substance: FLUPHENAZINE DECANOATE
     Dosage: UNK
     Dates: start: 20110712, end: 20110712

REACTIONS (1)
  - Blood creatine phosphokinase abnormal [Unknown]
